FAERS Safety Report 4510758-9 (Version None)
Quarter: 2004Q4

REPORT INFORMATION
  Report Type: 
  Country: None (occurrence: None)
  Receive Date: 20041124
  Receipt Date: 20041117
  Transmission Date: 20050328
  Serious: Yes (Disabling)
  Sender: FDA-Public Use
  Company Number: DK-MERCK-0411DNK00016

PATIENT
  Age: 46 Year
  Sex: Female
  Weight: 50 kg

DRUGS (4)
  1. FOSAMAX [Suspect]
     Indication: OSTEOPOROSIS
     Route: 048
     Dates: start: 20031003, end: 20041029
  2. SALMETEROL XINAFOATE [Concomitant]
     Indication: LUNG DISORDER
     Route: 055
  3. TIOTROPIUM BROMIDE [Concomitant]
     Indication: LUNG DISORDER
     Route: 055
  4. QUININE HYDROCHLORIDE [Concomitant]
     Indication: MUSCLE CRAMP
     Route: 048

REACTIONS (1)
  - DYSPNOEA [None]
